FAERS Safety Report 8381882-8 (Version None)
Quarter: 2012Q2

REPORT INFORMATION
  Report Type: 
  Country: None (occurrence: None)
  Receive Date: 20120522
  Receipt Date: 20120522
  Transmission Date: 20120825
  Serious: Yes (Other)
  Sender: FDA-Public Use
  Company Number: None

PATIENT
  Sex: Male
  Weight: 86.637 kg

DRUGS (1)
  1. RITUXIMAB 500MG GENETECH [Suspect]
     Indication: CHRONIC LYMPHOCYTIC LEUKAEMIA
     Dosage: 750MG IV PATIENT'S FIRST TREATMENT
     Route: 042

REACTIONS (4)
  - BLOOD PRESSURE DECREASED [None]
  - HYPERHIDROSIS [None]
  - DYSPNOEA [None]
  - CHEST PAIN [None]
